FAERS Safety Report 13660562 (Version 3)
Quarter: 2018Q1

REPORT INFORMATION
  Report Type: Spontaneous
  Country: US (occurrence: US)
  Receive Date: 20170616
  Receipt Date: 20180207
  Transmission Date: 20180508
  Serious: Yes (Hospitalization)
  Sender: FDA-Public Use
  Company Number: US-LUNDBECK-DKLU2032628

PATIENT
  Sex: Female

DRUGS (2)
  1. NORTHERA [Suspect]
     Active Substance: DROXIDOPA
     Indication: AUTONOMIC NEUROPATHY
     Dosage: TITRATION COMPLETE
     Route: 048
  2. NORTHERA [Suspect]
     Active Substance: DROXIDOPA
     Indication: AUTONOMIC NEUROPATHY

REACTIONS (14)
  - Feeling abnormal [Unknown]
  - Syncope [Unknown]
  - Hypertension [Unknown]
  - Orthostatic hypotension [Unknown]
  - Gastrointestinal disorder [Unknown]
  - Dry eye [Unknown]
  - Condition aggravated [Unknown]
  - Migraine [Unknown]
  - Dry mouth [Unknown]
  - Urinary tract disorder [Unknown]
  - Alopecia [Unknown]
  - Dysphagia [Unknown]
  - Stress cardiomyopathy [Unknown]
  - Pulmonary mass [Unknown]
